FAERS Safety Report 17927414 (Version 1)
Quarter: 2020Q2

REPORT INFORMATION
  Report Type: Other
  Country: US (occurrence: US)
  Receive Date: 20200622
  Receipt Date: 20200622
  Transmission Date: 20200714
  Serious: No
  Sender: FDA-Public Use
  Company Number: US-BIOVITRUM-2019US1037

PATIENT
  Sex: Male

DRUGS (9)
  1. LANSOPRAZOLE. [Concomitant]
     Active Substance: LANSOPRAZOLE
  2. FUROSEMIDE. [Concomitant]
     Active Substance: FUROSEMIDE
  3. PLAVIX [Concomitant]
     Active Substance: CLOPIDOGREL BISULFATE
  4. CARVEDILOL. [Concomitant]
     Active Substance: CARVEDILOL
  5. METFORMIN [Concomitant]
     Active Substance: METFORMIN HYDROCHLORIDE
  6. LISINOPRIL. [Concomitant]
     Active Substance: LISINOPRIL
  7. ISOSORBIDE. [Concomitant]
     Active Substance: ISOSORBIDE
  8. HCTZ [Concomitant]
     Active Substance: HYDROCHLOROTHIAZIDE
  9. KINERET [Suspect]
     Active Substance: ANAKINRA
     Route: 058

REACTIONS (3)
  - Injection site rash [Unknown]
  - Injection site pruritus [Unknown]
  - Pain [Unknown]
